FAERS Safety Report 13586492 (Version 1)
Quarter: 2017Q2

REPORT INFORMATION
  Report Type: Spontaneous
  Country: CN (occurrence: CN)
  Receive Date: 20170526
  Receipt Date: 20170526
  Transmission Date: 20170830
  Serious: Yes (Death, Other)
  Sender: FDA-Public Use
  Company Number: CN-ASTRAZENECA-2017SE49096

PATIENT
  Age: 71 Year
  Sex: Female

DRUGS (1)
  1. IRESSA [Suspect]
     Active Substance: GEFITINIB
     Indication: NON-SMALL CELL LUNG CANCER
     Route: 048
     Dates: start: 20170423, end: 20170504

REACTIONS (4)
  - Pleural effusion [Unknown]
  - Lung infection [Unknown]
  - Acute respiratory distress syndrome [Unknown]
  - Interstitial lung disease [Fatal]
